FAERS Safety Report 8553599-8 (Version None)
Quarter: 2012Q3

REPORT INFORMATION
  Report Type: 
  Country: None (occurrence: None)
  Receive Date: 20120731
  Receipt Date: 20120717
  Transmission Date: 20120928
  Serious: Yes (Hospitalization)
  Sender: FDA-Public Use
  Company Number: US-VIROPHARMA INCORPORATED-20120717CINRY3156

PATIENT
  Sex: Female

DRUGS (1)
  1. CINRYZE [Suspect]
     Indication: HEREDITARY ANGIOEDEMA
     Dosage: UNKNOWN

REACTIONS (7)
  - CENTRAL VENOUS CATHETER REMOVAL [None]
  - DRUG DOSE OMISSION [None]
  - INFECTION [None]
  - DEVICE RELATED SEPSIS [None]
  - STAPHYLOCOCCAL SEPSIS [None]
  - PRODUCT QUALITY ISSUE [None]
  - INFUSION RELATED REACTION [None]
